FAERS Safety Report 13838780 (Version 9)
Quarter: 2020Q2

REPORT INFORMATION
  Report Type: Spontaneous
  Country: US (occurrence: US)
  Receive Date: 20170807
  Receipt Date: 20200512
  Transmission Date: 20200713
  Serious: Yes (Hospitalization, Other)
  Sender: FDA-Public Use
  Company Number: US-PFIZER INC-2017336604

PATIENT
  Age: 43 Year
  Sex: Male

DRUGS (10)
  1. SUTENT [Suspect]
     Active Substance: SUNITINIB MALATE
     Dosage: 37.5 MG, CYCLIC (DAILY X 4 WEEKS ON, 2 WEEKS OFF)
     Route: 048
  2. UREA. [Concomitant]
     Active Substance: UREA
     Dosage: UNK
     Dates: start: 201710
  3. LEVOTHYROXINE. [Concomitant]
     Active Substance: LEVOTHYROXINE
     Dosage: UNK
     Dates: start: 2018
  4. SUTENT [Suspect]
     Active Substance: SUNITINIB MALATE
     Indication: RENAL CANCER METASTATIC
     Dosage: 50 MG, 1X/DAY
     Dates: start: 20170706
  5. SUTENT [Suspect]
     Active Substance: SUNITINIB MALATE
     Dosage: 37.5 MG, CYCLIC(DAILY X 14 DAYS OFF 7 DAYS AND REPEAT)
     Route: 048
  6. SUTENT [Suspect]
     Active Substance: SUNITINIB MALATE
     Dosage: 37.5 MG, CYCLIC (2 WKS OFF 1 WEEK)
     Route: 048
     Dates: start: 20190630
  7. LEVOTHYROXINE. [Concomitant]
     Active Substance: LEVOTHYROXINE
     Dosage: 75 UG, UNK
     Dates: start: 201710
  8. SUTENT [Suspect]
     Active Substance: SUNITINIB MALATE
     Indication: RENAL CANCER
     Dosage: 50 MG, CYCLIC
     Route: 048
     Dates: start: 20170701
  9. SUTENT [Suspect]
     Active Substance: SUNITINIB MALATE
     Dosage: 37.5 MG, 1X/DAY
     Dates: start: 20171105
  10. SUTENT [Suspect]
     Active Substance: SUNITINIB MALATE
     Dosage: 37.5 UNIT UNSPECIFIED, CYCLIC, (2 WEEKS OFF X ONE WEEK)
     Route: 048
     Dates: start: 20170630

REACTIONS (15)
  - Musculoskeletal pain [Not Recovered/Not Resolved]
  - Hyperthyroidism [Unknown]
  - Vomiting [Not Recovered/Not Resolved]
  - Product dose omission [Unknown]
  - Nausea [Not Recovered/Not Resolved]
  - Oral pain [Not Recovered/Not Resolved]
  - Dizziness [Not Recovered/Not Resolved]
  - Fatigue [Not Recovered/Not Resolved]
  - Skin disorder [Not Recovered/Not Resolved]
  - Palmar-plantar erythrodysaesthesia syndrome [Not Recovered/Not Resolved]
  - Decreased appetite [Not Recovered/Not Resolved]
  - Dry skin [Not Recovered/Not Resolved]
  - Weight decreased [Recovered/Resolved]
  - Limb discomfort [Unknown]
  - Stomatitis [Not Recovered/Not Resolved]

NARRATIVE: CASE EVENT DATE: 201707
